FAERS Safety Report 8245107-6 (Version None)
Quarter: 2012Q1

REPORT INFORMATION
  Report Type: 
  Country: None (occurrence: None)
  Receive Date: 20120329
  Receipt Date: 20120306
  Transmission Date: 20120608
  Serious: Yes (Hospitalization)
  Sender: FDA-Public Use
  Company Number: JP-GLAXOSMITHKLINE-B0787539A

PATIENT
  Sex: Female

DRUGS (4)
  1. WARFARIN SODIUM [Concomitant]
     Route: 048
     Dates: start: 20111202
  2. WARFARIN SODIUM [Concomitant]
     Route: 048
     Dates: start: 20111208
  3. WARFARIN SODIUM [Concomitant]
     Route: 048
     Dates: start: 20111204
  4. ARIXTRA [Suspect]
     Indication: DEEP VEIN THROMBOSIS
     Dosage: 5MG PER DAY
     Route: 058
     Dates: start: 20111202, end: 20111208

REACTIONS (2)
  - HAEMATOMA [None]
  - SWELLING [None]
